FAERS Safety Report 8454767-6 (Version None)
Quarter: 2012Q2

REPORT INFORMATION
  Report Type: 
  Country: None (occurrence: None)
  Receive Date: 20120621
  Receipt Date: 20120613
  Transmission Date: 20120825
  Serious: Yes (Other)
  Sender: FDA-Public Use
  Company Number: US-RB-041017-12

PATIENT
  Age: 93 Year
  Sex: Female

DRUGS (7)
  1. ASPIRIN [Concomitant]
     Indication: PRODUCT USED FOR UNKNOWN INDICATION
  2. DOXAZOSIN MESYLATE [Concomitant]
     Indication: PRODUCT USED FOR UNKNOWN INDICATION
  3. PREVACID [Concomitant]
     Indication: PRODUCT USED FOR UNKNOWN INDICATION
  4. SOTALOL HYDROCHLORIDE [Concomitant]
     Indication: PRODUCT USED FOR UNKNOWN INDICATION
  5. ASPIRIN [Concomitant]
     Indication: PRODUCT USED FOR UNKNOWN INDICATION
  6. NORVASC [Concomitant]
     Indication: BLOOD PRESSURE
  7. MUCINEX CHILDREN'S COUGH CHERRY [Suspect]
     Indication: BRONCHITIS
     Dosage: 1 TEASPOON
     Route: 048
     Dates: end: 20120604

REACTIONS (4)
  - OFF LABEL USE [None]
  - ABDOMINAL DISCOMFORT [None]
  - ARRHYTHMIA [None]
  - PALPITATIONS [None]
